FAERS Safety Report 17337421 (Version 1)
Quarter: 2020Q1

REPORT INFORMATION
  Report Type: Spontaneous
  Country: US (occurrence: US)
  Receive Date: 20200129
  Receipt Date: 20200129
  Transmission Date: 20200409
  Serious: No
  Sender: FDA-Public Use
  Company Number: NVSC2020US021325

PATIENT
  Sex: Female

DRUGS (1)
  1. RECLAST [Suspect]
     Active Substance: ZOLEDRONIC ACID
     Indication: PRODUCT USED FOR UNKNOWN INDICATION
     Dosage: UNK, Q12MO
     Route: 041

REACTIONS (6)
  - Fatigue [Unknown]
  - Arthralgia [Unknown]
  - Influenza [Unknown]
  - Pain in extremity [Unknown]
  - Cough [Unknown]
  - Chills [Unknown]
